FAERS Safety Report 6201196-1 (Version None)
Quarter: 2009Q2

REPORT INFORMATION
  Report Type: 
  Country: None (occurrence: None)
  Receive Date: 20090526
  Receipt Date: 20090512
  Transmission Date: 20091009
  Serious: Yes (Other)
  Sender: FDA-Public Use
  Company Number: US-BAYER-200911400BCC

PATIENT
  Age: 68 Year
  Sex: Female

DRUGS (6)
  1. ASPIRIN [Suspect]
     Indication: THROMBOSIS PROPHYLAXIS
     Dosage: TOTAL DAILY DOSE: 81 MG  UNIT DOSE: 81 MG
     Route: 048
     Dates: start: 20081001
  2. PLAVIX [Suspect]
     Indication: THROMBOSIS PROPHYLAXIS
     Dosage: TOTAL DAILY DOSE: 75 MG  UNIT DOSE: 75 MG
     Route: 048
     Dates: start: 20081001
  3. ASPIRIN [Suspect]
     Indication: DRUG USE FOR UNKNOWN INDICATION
     Dates: start: 20090420
  4. ASPIRIN [Suspect]
     Dates: start: 19990401, end: 20081001
  5. AVALIDE [Concomitant]
     Route: 048
     Dates: start: 19980101
  6. PRAVASTATIN [Concomitant]
     Indication: PROPHYLAXIS
     Dates: start: 20080101

REACTIONS (8)
  - ANGINA PECTORIS [None]
  - COAGULOPATHY [None]
  - CORONARY ARTERY OCCLUSION [None]
  - NAIL DISCOLOURATION [None]
  - ONYCHALGIA [None]
  - ONYCHOMADESIS [None]
  - PAIN IN EXTREMITY [None]
  - THROMBOSIS IN DEVICE [None]
